FAERS Safety Report 16166047 (Version 1)
Quarter: 2019Q2

REPORT INFORMATION
  Report Type: Spontaneous
  Country: FR (occurrence: FR)
  Receive Date: 20190406
  Receipt Date: 20190406
  Transmission Date: 20190711
  Serious: Yes (Death, Hospitalization, Other)
  Sender: FDA-Public Use
  Company Number: FR-ACCORD-118027

PATIENT
  Age: 67 Year
  Sex: Male
  Weight: 74 kg

DRUGS (11)
  1. CICLOSPORIN [Suspect]
     Active Substance: CYCLOSPORINE
     Indication: PSORIASIS
     Route: 048
  2. ENBREL [Suspect]
     Active Substance: ETANERCEPT
     Indication: PSORIASIS
     Dosage: 50 MG, 1D
     Route: 058
     Dates: start: 20150721, end: 201602
  3. METHOTREXATE. [Suspect]
     Active Substance: METHOTREXATE
     Indication: PSORIASIS
     Dosage: 15 MG, WE
     Route: 048
     Dates: start: 20140312, end: 20150621
  4. SORIATANE [Suspect]
     Active Substance: ACITRETIN
     Indication: PSORIASIS
     Dosage: 10 MG, 1D,  CAPSULE
     Route: 048
     Dates: start: 20131008, end: 201501
  5. CARBOPLATIN. [Concomitant]
     Active Substance: CARBOPLATIN
  6. METHOTREXATE. [Suspect]
     Active Substance: METHOTREXATE
     Indication: PSORIASIS
     Dosage: 20 MG, WE
     Route: 048
     Dates: start: 2007, end: 20131008
  7. ENBREL [Suspect]
     Active Substance: ETANERCEPT
     Indication: PRODUCT USED FOR UNKNOWN INDICATION
     Dosage: 25 MG, WE
     Route: 058
     Dates: start: 20160426, end: 20161002
  8. ENBREL [Suspect]
     Active Substance: ETANERCEPT
     Indication: PSORIASIS
     Dosage: 50 MG, WE
     Route: 058
     Dates: start: 201602
  9. ETOPOSIDE. [Concomitant]
     Active Substance: ETOPOSIDE
  10. DUROGESIC [Concomitant]
     Active Substance: FENTANYL
  11. SPECIAFOLDINE [Concomitant]
     Active Substance: FOLIC ACID
     Dosage: UNK
     Dates: start: 2013, end: 201506

REACTIONS (2)
  - Neoplasm [Fatal]
  - General physical health deterioration [Unknown]

NARRATIVE: CASE EVENT DATE: 20160927
